FAERS Safety Report 21364631 (Version 1)
Quarter: 2022Q3

REPORT INFORMATION
  Report Type: Spontaneous
  Country: DE (occurrence: None)
  Receive Date: 20220922
  Receipt Date: 20220922
  Transmission Date: 20221026
  Serious: Yes (Life-Threatening, Other)
  Sender: FDA-Public Use
  Company Number: DE-Merck Healthcare KGaA-9352192

PATIENT
  Age: 76 Year
  Sex: Female

DRUGS (6)
  1. EUTHYROX [Suspect]
     Active Substance: LEVOTHYROXINE SODIUM
     Indication: Post procedural hypothyroidism
     Dates: start: 1989
  2. EUTHYROX [Suspect]
     Active Substance: LEVOTHYROXINE SODIUM
  3. EUTHYROX [Suspect]
     Active Substance: LEVOTHYROXINE SODIUM
  4. EUTHYROX [Suspect]
     Active Substance: LEVOTHYROXINE SODIUM
     Dosage: 125 AND 137 UG ALTERNATING DAILY
     Dates: start: 202209
  5. EUTHYROX [Suspect]
     Active Substance: LEVOTHYROXINE SODIUM
  6. COVID-19 VACCINE NOS [Suspect]
     Active Substance: COVID-19 VACCINE NOS
     Indication: COVID-19 immunisation

REACTIONS (12)
  - Atrial fibrillation [Unknown]
  - Hypertension [Not Recovered/Not Resolved]
  - Eye operation [Unknown]
  - Anxiety [Not Recovered/Not Resolved]
  - Hyperthyroidism [Unknown]
  - Atrioventricular block [Unknown]
  - Tremor [Not Recovered/Not Resolved]
  - Restlessness [Unknown]
  - Endodontic procedure [Unknown]
  - Hypotension [Not Recovered/Not Resolved]
  - Blood thyroid stimulating hormone increased [Recovered/Resolved]
  - Overdose [Not Recovered/Not Resolved]

NARRATIVE: CASE EVENT DATE: 20211116
